FAERS Safety Report 6557814-1 (Version None)
Quarter: 2010Q1

REPORT INFORMATION
  Report Type: 
  Country: None (occurrence: None)
  Receive Date: 20100128
  Receipt Date: 20100128
  Transmission Date: 20100710
  Serious: No
  Sender: FDA-Public Use
  Company Number: None

PATIENT
  Sex: Male

DRUGS (2)
  1. ANDROGEL [Suspect]
     Indication: HORMONE LEVEL ABNORMAL
     Dosage: 2 PUMPS PER SIDE ONCE PER DAY MORNING UPPER ARM SHOULDER EVERY DAY FOR UNSURE OF NUMBER OF YEARS
  2. ANDROGEL [Suspect]
     Indication: DYSPHONIA
     Dosage: ONE PACKET (1) ONCE PER DAY

REACTIONS (1)
  - SKIN ODOUR ABNORMAL [None]
